FAERS Safety Report 8606784-0 (Version None)
Quarter: 2012Q3

REPORT INFORMATION
  Report Type: 
  Country: None (occurrence: None)
  Receive Date: 20120820
  Receipt Date: 20120808
  Transmission Date: 20120928
  Serious: Yes (Hospitalization, Other)
  Sender: FDA-Public Use
  Company Number: DE-ELI_LILLY_AND_COMPANY-DE201207001901

PATIENT
  Age: 56 Year
  Sex: Male

DRUGS (7)
  1. ATACAND [Concomitant]
     Dosage: 4 MG, QD
  2. BYDUREON [Suspect]
     Indication: TYPE 2 DIABETES MELLITUS
     Dosage: 2 MG, WEEKLY (1/W)
     Route: 058
     Dates: start: 20111117
  3. ASPIRIN [Concomitant]
     Dosage: 100 MG, QD
  4. SIMVASTATIN [Concomitant]
     Dosage: 40 MG, BID
  5. BYETTA [Suspect]
     Indication: TYPE 2 DIABETES MELLITUS
     Dosage: UNK, UNKNOWN
     Dates: start: 20090401, end: 20111117
  6. METOPROLOL TARTRATE [Concomitant]
     Dosage: 50 MG, BID
  7. METFORMIN HCL [Concomitant]
     Dosage: 1000 MG, BID

REACTIONS (4)
  - URINARY TRACT INFECTION ENTEROCOCCAL [None]
  - CALCULUS URETERIC [None]
  - PROSTATE CANCER [None]
  - NEPHROLITHIASIS [None]
